FAERS Safety Report 8778013 (Version 3)
Quarter: 2013Q4

REPORT INFORMATION
  Report Type: Spontaneous
  Country: FR (occurrence: FR)
  Receive Date: 20120912
  Receipt Date: 20131015
  Transmission Date: 20140711
  Serious: Yes (Other)
  Sender: FDA-Public Use
  Company Number: FR-PFIZER INC-2012223827

PATIENT
  Age: 50 Year
  Sex: Male

DRUGS (12)
  1. MORPHINE SULFATE [Suspect]
     Indication: PAIN
     Dosage: 500 MG, 2X/DAY
     Route: 048
  2. MOSCONTIN [Concomitant]
     Dosage: UNK
  3. REYATAZ [Concomitant]
     Dosage: 300 MG, UNK
     Route: 048
  4. NORVIR [Concomitant]
     Dosage: 100 MG, UNK
     Route: 048
  5. TRUVADA [Concomitant]
     Dosage: 245/200 MG
     Route: 048
  6. GARDENAL [Concomitant]
     Dosage: UNK
     Route: 048
  7. ZOLOFT [Concomitant]
     Dosage: 50 MG, UNK
     Route: 048
  8. MOGADON [Concomitant]
     Dosage: 5 MG, UNK
     Route: 048
  9. BACTRIM [Concomitant]
     Dosage: UNK
     Route: 048
  10. VOLTARENE [Concomitant]
     Dosage: 100 MG, UNK
     Route: 048
  11. ZOPICLONE [Concomitant]
     Dosage: UNK
     Route: 048
  12. UVEDOSE [Concomitant]
     Dosage: 100000 UI
     Route: 048

REACTIONS (3)
  - Drug abuse [Recovered/Resolved]
  - Allodynia [Recovered/Resolved]
  - Hyperaesthesia [Recovered/Resolved]
